FAERS Safety Report 8384119-9 (Version None)
Quarter: 2012Q2

REPORT INFORMATION
  Report Type: 
  Country: None (occurrence: None)
  Receive Date: 20120524
  Receipt Date: 20120514
  Transmission Date: 20120825
  Serious: Yes (Death, Other)
  Sender: FDA-Public Use
  Company Number: GR-ROCHE-1069452

PATIENT

DRUGS (8)
  1. AVASTIN [Suspect]
     Dosage: ON DAY 1 AND EVERY 2 WKS
     Route: 042
  2. LEUCOVORIN CALCIUM [Suspect]
     Indication: COLORECTAL CANCER METASTATIC
     Dosage: ON DAY 1 AND 2
     Route: 042
  3. XELODA [Suspect]
     Indication: COLORECTAL CANCER METASTATIC
     Dosage: 1-14 DAYS
     Route: 048
  4. FLUOROURACIL [Suspect]
     Dosage: GIVEN PER DAY
     Route: 042
  5. IRINOTECAN HYDROCHLORIDE [Suspect]
     Dosage: ON DAY 1
  6. FLUOROURACIL [Suspect]
     Indication: COLORECTAL CANCER METASTATIC
     Dosage: 22HRS CONTINOUS INFUSION DAY 1 AND 2 PER DAY
     Route: 040
  7. AVASTIN [Suspect]
     Indication: COLORECTAL CANCER METASTATIC
     Dosage: ON DAY 1 AND EVERY 3 WKS
     Route: 042
  8. IRINOTECAN HYDROCHLORIDE [Suspect]
     Indication: COLORECTAL CANCER METASTATIC
     Dosage: ON DAY 1
     Route: 042

REACTIONS (12)
  - LARGE INTESTINE PERFORATION [None]
  - ALOPECIA [None]
  - MUCOSAL INFLAMMATION [None]
  - NEUTROPENIA [None]
  - ANAEMIA [None]
  - NAUSEA [None]
  - THROMBOCYTOPENIA [None]
  - DIARRHOEA [None]
  - FATIGUE [None]
  - PALMAR-PLANTAR ERYTHRODYSAESTHESIA SYNDROME [None]
  - FEBRILE NEUTROPENIA [None]
  - HYPERTENSION [None]
